FAERS Safety Report 8585540-6 (Version None)
Quarter: 2012Q3

REPORT INFORMATION
  Report Type: 
  Country: None (occurrence: None)
  Receive Date: 20120810
  Receipt Date: 20120730
  Transmission Date: 20120928
  Serious: Yes (Other)
  Sender: FDA-Public Use
  Company Number: US-ELI_LILLY_AND_COMPANY-US201208000586

PATIENT
  Sex: Male

DRUGS (2)
  1. HUMATROPE [Suspect]
     Indication: GROWTH HORMONE DEFICIENCY
     Dosage: 1 MG, 6/W
     Dates: end: 20111117
  2. HUMATROPE [Suspect]
     Dosage: 1 MG, 6/W
     Dates: start: 20120726

REACTIONS (2)
  - CONVULSION [None]
  - GROWTH RETARDATION [None]
